FAERS Safety Report 9739478 (Version 1)
Quarter: 2013Q4

REPORT INFORMATION
  Report Type: Report from Study
  Country: KR (occurrence: KR)
  Receive Date: 20131209
  Receipt Date: 20131209
  Transmission Date: 20140711
  Serious: Yes (Hospitalization)
  Sender: FDA-Public Use
  Company Number: KR-009507513-1312KOR001125

PATIENT
  Age: 76 Year
  Sex: Female
  Weight: 50 kg

DRUGS (11)
  1. DEXAMETHASONE [Suspect]
     Indication: PLASMA CELL MYELOMA
     Dosage: 20 MG ON DAY 1,2,4,5,8,9,11,12 EVERY 21 DAYS
     Route: 048
     Dates: start: 20130702, end: 20131001
  2. BORTEZOMIB [Suspect]
     Indication: PLASMA CELL MYELOMA
     Dosage: 1.3 MG/M2 ON DAYS 1,4,8,11 EVERY 21 DAYS
     Route: 058
     Dates: start: 20130702, end: 20130801
  3. BORTEZOMIB [Suspect]
     Dosage: 1 MG/M2 ON DAYS 1,4,8,11 EVERY 21 DAYS
     Route: 058
     Dates: start: 20130802, end: 20130930
  4. STUDY DRUG (UNSPECIFIED) [Suspect]
     Indication: PLASMA CELL MYELOMA
     Dosage: UNK
     Dates: start: 20130702, end: 20130917
  5. HYDROCHLOROTHIAZIDE [Concomitant]
     Indication: HYPERTENSION
     Dosage: UNK
     Dates: start: 1980, end: 20131027
  6. FELODIPINE [Concomitant]
     Indication: HYPERTENSION
     Dosage: UNK
     Dates: start: 1980
  7. CAL-D-VITA [Concomitant]
     Indication: PROPHYLAXIS
     Dosage: UNK
     Dates: start: 20120321
  8. CAL-D-VITA [Concomitant]
     Indication: BONE LESION
  9. ACLOVIR [Concomitant]
     Indication: INFECTION PROPHYLAXIS
     Dosage: UNK
     Dates: start: 20130702, end: 20131021
  10. ULTRACET [Concomitant]
     Indication: MYALGIA
     Dosage: UNK
     Dates: start: 20130708
  11. FUROSEMIDE [Concomitant]
     Indication: OEDEMA
     Dosage: UNK
     Dates: start: 20131021, end: 20131027

REACTIONS (1)
  - Dyspnoea [Not Recovered/Not Resolved]
